FAERS Safety Report 7750822-4 (Version None)
Quarter: 2011Q3

REPORT INFORMATION
  Report Type: 
  Country: None (occurrence: None)
  Receive Date: 20110914
  Receipt Date: 20110907
  Transmission Date: 20111222
  Serious: Yes (Hospitalization)
  Sender: FDA-Public Use
  Company Number: US-ABBOTT-11P-163-0852484-00

PATIENT
  Sex: Female
  Weight: 90.8 kg

DRUGS (9)
  1. VITAMIN TAB [Concomitant]
     Indication: VITAMIN SUPPLEMENTATION
  2. METHOTREXATE [Concomitant]
     Indication: PSORIASIS
  3. FOLIC ACID [Concomitant]
     Indication: VITAMIN SUPPLEMENTATION
  4. HUMIRA [Suspect]
     Indication: RHEUMATOID ARTHRITIS
     Dates: start: 20100101
  5. HUMIRA [Suspect]
     Indication: PSORIASIS
  6. HUMIRA [Suspect]
     Indication: PSORIATIC ARTHROPATHY
     Dates: end: 20101201
  7. METHOTREXATE [Concomitant]
     Indication: RHEUMATOID ARTHRITIS
  8. METHOTREXATE [Concomitant]
     Indication: PSORIATIC ARTHROPATHY
  9. ALBUTEROL [Concomitant]
     Indication: ASTHMA
     Route: 055

REACTIONS (11)
  - OVERWEIGHT [None]
  - VOMITING [None]
  - CHOLECYSTITIS INFECTIVE [None]
  - PAIN [None]
  - FATIGUE [None]
  - ARTHRITIS [None]
  - CHOLELITHIASIS [None]
  - GALLBLADDER PAIN [None]
  - ARTHRALGIA [None]
  - IMPAIRED HEALING [None]
  - GAIT DISTURBANCE [None]
